FAERS Safety Report 5382474-5 (Version None)
Quarter: 2007Q3

REPORT INFORMATION
  Report Type: 
  Country: None (occurrence: None)
  Receive Date: 20070703
  Receipt Date: 20070108
  Transmission Date: 20080115
  Serious: Yes (Other)
  Sender: FDA-Public Use
  Company Number: US-JNJFOC-20070101558

PATIENT
  Age: 56 Year
  Sex: Male

DRUGS (2)
  1. MOTRIN IB [Suspect]
     Indication: INFLUENZA LIKE ILLNESS
     Dosage: 800 MG, 1 IN 1 AS NECESSARY; ORAL
     Route: 048
     Dates: start: 20060101, end: 20060101
  2. PEGASYS [Suspect]
     Indication: HEPATITIS C
     Dosage: 90 UG, 1 IN 1 WEEK; SUBCUTANEOUS
     Route: 058
     Dates: start: 20060925

REACTIONS (2)
  - FATIGUE [None]
  - POST PROCEDURAL HAEMORRHAGE [None]
